FAERS Safety Report 25255131 (Version 1)
Quarter: 2025Q2

REPORT INFORMATION
  Report Type: Report from Study
  Country: US (occurrence: US)
  Receive Date: 20250430
  Receipt Date: 20250430
  Transmission Date: 20250717
  Serious: Yes (Other)
  Sender: JAZZ
  Company Number: US-JAZZ PHARMACEUTICALS-2025-US-010754

PATIENT
  Age: 30 Year
  Sex: Female

DRUGS (5)
  1. XYWAV [Suspect]
     Active Substance: CALCIUM OXYBATE\MAGNESIUM OXYBATE\POTASSIUM OXYBATE\SODIUM OXYBATE
     Indication: Hypersomnia
  2. MODAFINIL [Concomitant]
     Active Substance: MODAFINIL
     Indication: Hypersensitivity
  3. TOPIRAMATE [Concomitant]
     Active Substance: TOPIRAMATE
     Indication: Hypersensitivity
  4. OLMESARTAN [Concomitant]
     Active Substance: OLMESARTAN
     Indication: Hypersensitivity
  5. ZYRTEC [Concomitant]
     Active Substance: CETIRIZINE HYDROCHLORIDE
     Indication: Hypersensitivity

REACTIONS (2)
  - Acoustic neuroma [Unknown]
  - Aneurysm [Unknown]

NARRATIVE: CASE EVENT DATE: 20250327
